FAERS Safety Report 26117966 (Version 2)
Quarter: 2025Q4

REPORT INFORMATION
  Report Type: Spontaneous
  Country: EU (occurrence: EU)
  Receive Date: 20251203
  Receipt Date: 20251205
  Transmission Date: 20260118
  Serious: Yes (Other)
  Sender: PFIZER
  Company Number: EU-PFIZER INC-PV202400016855

PATIENT
  Age: 10 Year
  Sex: Female
  Weight: 59.1 kg

DRUGS (16)
  1. LORLATINIB [Suspect]
     Active Substance: LORLATINIB
     Indication: Neuroblastoma
     Dosage: 125 MG, 1X/DAY
     Dates: start: 20211206, end: 20221205
  2. LORLATINIB [Suspect]
     Active Substance: LORLATINIB
     Dosage: 135 MG, DAILY
     Dates: start: 20220131
  3. LORLATINIB [Suspect]
     Active Substance: LORLATINIB
     Dosage: 140 MG, DAILY
     Dates: start: 20220228
  4. LORLATINIB [Suspect]
     Active Substance: LORLATINIB
     Dosage: 145 MG, DAILY
     Dates: start: 20220328
  5. LORLATINIB [Suspect]
     Active Substance: LORLATINIB
     Dosage: 145 MG, DAILY
     Dates: start: 20220425
  6. LORLATINIB [Suspect]
     Active Substance: LORLATINIB
     Dosage: 150 MG, DAILY
     Dates: start: 20220523
  7. LORLATINIB [Suspect]
     Active Substance: LORLATINIB
     Dosage: 155 MG, DAILY
     Dates: start: 20220816
  8. LORLATINIB [Suspect]
     Active Substance: LORLATINIB
     Dosage: 160 MG, DAILY
     Dates: start: 20220912
  9. LORLATINIB [Suspect]
     Active Substance: LORLATINIB
     Dosage: 165 MG, DAILY
     Dates: start: 20221205
  10. LORLATINIB [Suspect]
     Active Substance: LORLATINIB
     Dosage: 150 MG, DAILY
     Dates: start: 20221231, end: 20230104
  11. LORLATINIB [Suspect]
     Active Substance: LORLATINIB
     Dosage: 150 MG, DAILY
     Dates: start: 20230204, end: 20230302
  12. LORLATINIB [Suspect]
     Active Substance: LORLATINIB
     Dosage: 175 MG, 1X/DAY
     Dates: start: 20240105
  13. LORLATINIB [Suspect]
     Active Substance: LORLATINIB
     Dosage: 200 MG, 1X/DAY (AT A FIXED HOUR)
     Dates: start: 20240926
  14. LORLATINIB [Suspect]
     Active Substance: LORLATINIB
     Dosage: 200 MG, 1X/DAY,  AT A FIXED HOUR
  15. LORLATINIB [Suspect]
     Active Substance: LORLATINIB
     Dosage: 200 MG, 1X/DAY,  AT A FIXED HOUR
  16. LORLATINIB [Suspect]
     Active Substance: LORLATINIB
     Dosage: TAKE 200 MG ONCE DAILY AT THE SAME TIME

REACTIONS (12)
  - Proteinuria [Unknown]
  - Metastases to bone marrow [Unknown]
  - Recurrent cancer [Unknown]
  - Headache [Unknown]
  - Nausea [Unknown]
  - COVID-19 [Unknown]
  - Weight increased [Unknown]
  - Myalgia [Unknown]
  - Hypertriglyceridaemia [Unknown]
  - Hypercholesterolaemia [Unknown]
  - Off label use [Unknown]
  - Off label use [Unknown]

NARRATIVE: CASE EVENT DATE: 20211206
